FAERS Safety Report 19417720 (Version 1)
Quarter: 2021Q2

REPORT INFORMATION
  Report Type: Spontaneous
  Country: US (occurrence: US)
  Receive Date: 20210615
  Receipt Date: 20210615
  Transmission Date: 20210717
  Serious: Yes (Hospitalization)
  Sender: FDA-Public Use
  Company Number: None

PATIENT
  Age: 53 Year
  Sex: Female
  Weight: 68.85 kg

DRUGS (1)
  1. ZOMIG [Suspect]
     Active Substance: ZOLMITRIPTAN
     Indication: MIGRAINE
     Dosage: ?          QUANTITY:1 SPRAY(S);OTHER FREQUENCY:ONLY AS NEEDED;OTHER ROUTE:NASAL SRAY?

REACTIONS (2)
  - Pyrexia [None]
  - Paralysis [None]

NARRATIVE: CASE EVENT DATE: 20210612
